FAERS Safety Report 14641631 (Version 1)
Quarter: 2018Q1

REPORT INFORMATION
  Report Type: Spontaneous
  Country: BG (occurrence: BG)
  Receive Date: 20180315
  Receipt Date: 20180315
  Transmission Date: 20180509
  Serious: Yes (Hospitalization)
  Sender: FDA-Public Use
  Company Number: BG-BAYER-2018-044014

PATIENT
  Age: 82 Year
  Sex: Male

DRUGS (3)
  1. VINPOCETIN [Concomitant]
  2. METOPROLOL. [Concomitant]
     Active Substance: METOPROLOL
  3. ASPIRIN PROTECT 100 MG [Suspect]
     Active Substance: ASPIRIN
     Dosage: 100 MG, UNK

REACTIONS (3)
  - Palpitations [None]
  - Dyspnoea [None]
  - Atrial fibrillation [None]
